FAERS Safety Report 9689725 (Version 1)
Quarter: 2013Q4

REPORT INFORMATION
  Report Type: Spontaneous
  Country: US (occurrence: US)
  Receive Date: 20131115
  Receipt Date: 20131115
  Transmission Date: 20140711
  Serious: No
  Sender: FDA-Public Use
  Company Number: US-009507513-1311USA005368

PATIENT
  Sex: Male

DRUGS (7)
  1. PROPECIA [Suspect]
     Indication: ALOPECIA
     Dosage: 1 MG, QD
     Route: 048
  2. LIPITOR [Concomitant]
  3. PROTONIX [Concomitant]
  4. NIACIN [Concomitant]
  5. ZANTAC [Concomitant]
  6. PROZAC [Concomitant]
  7. ASPIRIN [Concomitant]

REACTIONS (3)
  - Alopecia [Not Recovered/Not Resolved]
  - Drug effect decreased [Unknown]
  - Suspected counterfeit product [Unknown]
